FAERS Safety Report 4790231-3 (Version None)
Quarter: 2005Q4

REPORT INFORMATION
  Report Type: 
  Country: None (occurrence: None)
  Receive Date: 20051005
  Receipt Date: 20051005
  Transmission Date: 20060501
  Serious: Yes (Death, Life-Threatening, Hospitalization)
  Sender: FDA-Public Use
  Company Number: None

PATIENT
  Sex: Male
  Weight: 48.9885 kg

DRUGS (2)
  1. AVASTIN [Suspect]
     Indication: BRAIN NEOPLASM
     Dosage: 485 MG IV
     Route: 042
     Dates: start: 20050610
  2. AVASTIN [Suspect]
     Indication: BRAIN NEOPLASM
     Dosage: 485 MG IV
     Route: 042
     Dates: start: 20050624

REACTIONS (2)
  - HAEMORRHAGE INTRACRANIAL [None]
  - MENTAL IMPAIRMENT [None]
